FAERS Safety Report 5778704-8 (Version None)
Quarter: 2008Q2

REPORT INFORMATION
  Report Type: 
  Country: None (occurrence: None)
  Receive Date: 20080619
  Receipt Date: 20080616
  Transmission Date: 20081010
  Serious: Yes (Other)
  Sender: FDA-Public Use
  Company Number: US-ASTRAZENECA-2007UW19654

PATIENT
  Age: 509 Month
  Sex: Female
  Weight: 68.2 kg

DRUGS (6)
  1. SEROQUEL [Suspect]
     Indication: SLEEP DISORDER
     Route: 048
     Dates: start: 20010101
  2. SEROQUEL [Suspect]
     Indication: BIPOLAR DISORDER
     Route: 048
     Dates: start: 20010101
  3. SEROQUEL [Suspect]
     Indication: DEPRESSION
     Route: 048
     Dates: start: 20010101
  4. CLOZARIL [Concomitant]
     Route: 048
     Dates: start: 20010101, end: 20070101
  5. ZYPREXA [Concomitant]
     Route: 048
     Dates: start: 20050101
  6. ZOLOFT [Concomitant]
     Route: 048
     Dates: start: 20010101, end: 20050101

REACTIONS (5)
  - DIABETES MELLITUS [None]
  - DIABETIC COMA [None]
  - DRUG DETOXIFICATION [None]
  - FEMUR FRACTURE [None]
  - PELVIC FRACTURE [None]
